FAERS Safety Report 23344634 (Version 2)
Quarter: 2023Q4

REPORT INFORMATION
  Report Type: Spontaneous
  Country: US (occurrence: US)
  Receive Date: 20231228
  Receipt Date: 20231229
  Transmission Date: 20240110
  Serious: No
  Sender: FDA-Public Use
  Company Number: US-GSK-US2023AMR179273

PATIENT
  Sex: Female

DRUGS (1)
  1. BENLYSTA [Suspect]
     Active Substance: BELIMUMAB
     Indication: Systemic lupus erythematosus
     Dosage: 200 MG, WE
     Route: 058

REACTIONS (7)
  - Alopecia [Unknown]
  - Headache [Unknown]
  - Frequent bowel movements [Unknown]
  - Stomatitis [Recovering/Resolving]
  - Inflammation [Recovering/Resolving]
  - Pain [Not Recovered/Not Resolved]
  - Drug ineffective [Unknown]
